FAERS Safety Report 26162308 (Version 1)
Quarter: 2025Q4

REPORT INFORMATION
  Report Type: Report from Study
  Country: US (occurrence: US)
  Receive Date: 20251216
  Receipt Date: 20251216
  Transmission Date: 20260118
  Serious: Yes (Other)
  Sender: ABBVIE
  Company Number: US-ABBVIE-6589315

PATIENT
  Sex: Female

DRUGS (1)
  1. IMBRUVICA [Suspect]
     Active Substance: IBRUTINIB
     Indication: Product used for unknown indication
     Route: 048

REACTIONS (6)
  - Waldenstrom^s macroglobulinaemia [Unknown]
  - Eye disorder [Unknown]
  - Asthenia [Unknown]
  - Pain [Unknown]
  - Insomnia [Unknown]
  - Generalised oedema [Unknown]
